FAERS Safety Report 9010983 (Version 4)
Quarter: 2014Q1

REPORT INFORMATION
  Report Type: Report from Study
  Country: DE (occurrence: DE)
  Receive Date: 20130109
  Receipt Date: 20140220
  Transmission Date: 20141002
  Serious: Yes (Hospitalization, Other)
  Sender: FDA-Public Use
  Company Number: DE-OTSUKA-EU-2011-10262

PATIENT
  Sex: Female
  Weight: 75 kg

DRUGS (111)
  1. EMEND [Concomitant]
     Indication: PROPHYLAXIS OF NAUSEA AND VOMITING
     Dosage: 125 MG MILLIGRAM(S), DAILY DOSE
     Route: 048
     Dates: start: 20111028, end: 20111028
  2. EMEND [Concomitant]
     Dosage: 80 MG MILLIGRAM(S), DAILY DOSE
     Route: 048
     Dates: start: 20111029, end: 20111030
  3. AMPHO MORONAL [Concomitant]
     Indication: PROPHYLAXIS
     Dosage: 4 DF DOSAGE FORM, DAILY DOSE
     Route: 048
     Dates: start: 20111029, end: 20111108
  4. MCP [Concomitant]
     Indication: PROPHYLAXIS OF NAUSEA AND VOMITING
     Dosage: 20 GTT DROP(S), DAILY DOSE
     Route: 048
     Dates: start: 20111028, end: 20111028
  5. MCP [Concomitant]
     Dosage: 60 GTT DROP(S), DAILY DOSE
     Route: 048
     Dates: start: 20111029, end: 20111029
  6. MCP [Concomitant]
     Dosage: 20 GTT DROP(S), DAILY DOSE
     Route: 048
     Dates: start: 20120208, end: 20120208
  7. MCP [Concomitant]
     Dosage: 60 GTT DROP(S), DAILY DOSE
     Route: 048
     Dates: start: 20120209, end: 20120219
  8. AVALOX [Concomitant]
     Indication: PROPHYLAXIS
     Dosage: 400 MG MILLIGRAM(S), DAILY DOSE
     Route: 048
     Dates: start: 20111027, end: 20111108
  9. DUROGESIC [Concomitant]
     Indication: TUMOUR PAIN
     Dosage: 50 ?G MICROGRAM(S), Q1HR
     Route: 062
     Dates: start: 20111101, end: 20120212
  10. DUROGESIC [Concomitant]
     Dosage: 100 ?G MICROGRAM(S), Q1HR
     Route: 062
     Dates: start: 20120213
  11. LYRICA [Concomitant]
     Indication: TUMOUR PAIN
     Dosage: 75 MG MILLIGRAM(S), DAILY DOSE
     Route: 048
     Dates: start: 20111029, end: 20111029
  12. LYRICA [Concomitant]
     Dosage: 150 MG MILLIGRAM(S), DAILY DOSE
     Route: 048
     Dates: start: 20111030, end: 201201
  13. OXYGESIC [Concomitant]
     Indication: TUMOUR PAIN
     Dosage: 40 MG MILLIGRAM(S), DAILY DOSE
     Route: 048
     Dates: start: 20111027, end: 20111030
  14. OXYGESIC [Concomitant]
     Dosage: 40 MG MILLIGRAM(S), DAILY DOSE
     Route: 048
     Dates: start: 20111031, end: 20111031
  15. NITRAZEPAM [Concomitant]
     Indication: INSOMNIA
     Dosage: 10 MG MILLIGRAM(S), DAILY DOSE
     Route: 048
     Dates: start: 20111031, end: 20111031
  16. TAVOR [Concomitant]
     Indication: SLEEP DISORDER
     Dosage: 1 MG MILLIGRAM(S), DAILY DOSE
     Route: 048
     Dates: start: 20111030, end: 20111030
  17. TAVOR [Concomitant]
     Dosage: 1 MG MILLIGRAM(S), DAILY DOSE
     Route: 048
     Dates: start: 20120123, end: 20120123
  18. NITROGLYCERIN [Concomitant]
     Indication: HYPERTENSION
     Dosage: 2 DF DOSAGE FORM, DAILY DOSE
     Route: 002
     Dates: start: 20111029, end: 20111029
  19. MG [Concomitant]
     Indication: HYPOMAGNESAEMIA
     Dosage: 3 DF DOSAGE FORM, DAILY DOSE
     Route: 048
     Dates: start: 20111103, end: 20111103
  20. MG [Concomitant]
     Dosage: 1 DF DOSAGE FORM, DAILY DOSE
     Route: 048
     Dates: start: 20111104, end: 20111104
  21. MG [Concomitant]
     Dosage: 2 DF DOSAGE FORM, DAILY DOSE
     Route: 048
     Dates: start: 20111105, end: 20111115
  22. AMINOMIX [Concomitant]
     Indication: NUTRITIONAL SUPPLEMENTATION
     Dosage: 500 ML MILLILITRE(S), DAILY DOSE
     Route: 042
     Dates: start: 20120206, end: 20120221
  23. AREDIA [Concomitant]
     Indication: METASTASES TO BONE
     Dosage: 60 MG MILLIGRAM(S), DAILY DOSE
     Route: 042
     Dates: start: 20120212, end: 20120212
  24. KATADOLON S [Concomitant]
     Indication: TUMOUR PAIN
     Dosage: 1 DF DOSAGE FORM, DAILY DOSE
     Route: 048
     Dates: start: 20120210, end: 20120220
  25. CLINOLIC [Concomitant]
     Indication: NUTRITIONAL SUPPLEMENTATION
     Dosage: 1 DF DOSAGE FORM, DAILY DOSE
     Route: 042
     Dates: start: 20120206, end: 20120221
  26. SAMSCA [Suspect]
     Indication: INAPPROPRIATE ANTIDIURETIC HORMONE SECRETION
     Dosage: 7.5 MG MILLIGRAM(S), UNKNOWN
     Route: 048
     Dates: start: 20111021, end: 20111024
  27. SAMSCA [Suspect]
     Dosage: 15 MG MILLIGRAM(S), DAILY DOSE
     Route: 048
     Dates: start: 20120122, end: 20120208
  28. SAMSCA [Suspect]
     Dosage: 15 MG MILLIGRAM(S), QOD
     Route: 048
     Dates: start: 20120209, end: 20120218
  29. SAMSCA [Suspect]
     Dosage: 7.5 MG MILLIGRAM(S), QOD
     Route: 048
     Dates: start: 20120219, end: 201203
  30. PANTOZOL [Concomitant]
     Indication: PROPHYLAXIS AGAINST GASTROINTESTINAL ULCER
     Dosage: 80 MG MILLIGRAM(S), DAILY DOSE
     Route: 048
     Dates: start: 20111018, end: 20111101
  31. PANTOZOL [Concomitant]
     Indication: GASTROOESOPHAGEAL REFLUX DISEASE
     Dosage: 40 MG MILLIGRAM(S), DAILY DOSE
     Route: 048
     Dates: start: 20111103, end: 20111108
  32. PANTOZOL [Concomitant]
     Dosage: 80 MG MILLIGRAM(S), DAILY DOSE
     Route: 048
     Dates: start: 20111109, end: 20111123
  33. PANTOZOL [Concomitant]
     Dosage: 80 MG MILLIGRAM(S), DAILY DOSE
     Route: 048
     Dates: start: 20111127
  34. IMBUN [Concomitant]
     Indication: TUMOUR PAIN
     Dosage: 1600 MG MILLIGRAM(S), DAILY DOSE
     Route: 048
     Dates: start: 20111028, end: 20111028
  35. IMBUN [Concomitant]
     Dosage: 2400 MG MILLIGRAM(S), DAILY DOSE
     Route: 048
     Dates: start: 20111029, end: 20111121
  36. SULTANOL [Concomitant]
     Indication: DYSPNOEA
     Dosage: 4 DF DOSAGE FORM, DAILY DOSE
     Route: 050
     Dates: start: 20111027, end: 20111031
  37. SULTANOL [Concomitant]
     Dosage: 3 DF DOSAGE FORM, DAILY DOSE
     Route: 050
     Dates: start: 20111101, end: 20111108
  38. SULTANOL [Concomitant]
     Dosage: UNK UNKNOWN, Q6HR
     Route: 007
     Dates: start: 20120206, end: 20120221
  39. ATROVENT [Concomitant]
     Indication: DYSPNOEA
     Dosage: 4 DF DOSAGE FORM, DAILY DOSE
     Route: 050
     Dates: start: 20111027, end: 20111031
  40. ATROVENT [Concomitant]
     Dosage: 3 DF DOSAGE FORM, DAILY DOSE
     Route: 050
     Dates: start: 20111101, end: 20111108
  41. ATROVENT [Concomitant]
     Dosage: 4 UNKNOWN, Q6HR
     Route: 007
     Dates: start: 20120206, end: 20120221
  42. DORMICUM [Concomitant]
     Indication: ANAESTHETIC PREMEDICATION
     Dosage: 11.25 MG MILLIGRAM(S), DAILY DOSE
     Route: 048
     Dates: start: 20111101, end: 20111101
  43. KALINOR [Concomitant]
     Indication: HYPOKALAEMIA
     Dosage: 2 DF DOSAGE FORM, DAILY DOSE
     Route: 048
     Dates: start: 20111102, end: 20111103
  44. KALINOR [Concomitant]
     Dosage: 1 DF DOSAGE FORM, DAILY DOSE
     Route: 048
     Dates: start: 20111104, end: 20111108
  45. NACL [Concomitant]
     Indication: RESPIRATION ABNORMAL
     Dosage: 4 DF DOSAGE FORM, DAILY DOSE
     Route: 050
     Dates: start: 20111018, end: 20111024
  46. TARGIN [Concomitant]
     Indication: TUMOUR PAIN
     Dosage: 20 MG MILLIGRAM(S), DAILY DOSE
     Route: 048
     Dates: start: 20111018, end: 20111022
  47. TARGIN [Concomitant]
     Dosage: 30 MG MILLIGRAM(S), DAILY DOSE
     Route: 048
     Dates: start: 20111023, end: 20111023
  48. TARGIN [Concomitant]
     Dosage: 40 MG MILLIGRAM(S), DAILY DOSE
     Route: 048
     Dates: start: 20111024, end: 20111024
  49. BIFITERAL [Concomitant]
     Indication: CONSTIPATION
     Dosage: 1 DF DOSAGE FORM, DAILY DOSE
     Route: 048
     Dates: start: 20111019, end: 20111019
  50. BIFITERAL [Concomitant]
     Dosage: 3 DF DOSAGE FORM, DAILY DOSE
     Route: 048
     Dates: start: 20111020, end: 20111024
  51. BIFITERAL [Concomitant]
     Dosage: 20 ML MILLILITRE(S), DAILY DOSE
     Route: 048
     Dates: start: 20111025, end: 20111128
  52. ZOPICLON [Concomitant]
     Indication: INSOMNIA
     Dosage: 7.5 MG MILLIGRAM(S), DAILY DOSE
     Route: 048
     Dates: start: 20111019, end: 20111024
  53. ZOPICLON [Concomitant]
     Dosage: 7.5 MG MILLIGRAM(S), DAILY DOSE
     Route: 048
     Dates: start: 20111028, end: 20111029
  54. ZOPICLON [Concomitant]
     Dosage: 7.5 MG MILLIGRAM(S), DAILY DOSE
     Route: 048
     Dates: start: 201201
  55. ZOPICLON [Concomitant]
     Dosage: 7.5 MG MILLIGRAM(S), DAILY DOSE
     Route: 048
     Dates: start: 20111101, end: 20111101
  56. PARACETAMOL [Concomitant]
     Indication: TUMOUR PAIN
     Dosage: 1 G GRAM(S), DAILY DOSE
     Route: 048
     Dates: start: 20111018, end: 20111018
  57. PARACETAMOL [Concomitant]
     Dosage: 3 G GRAM(S), DAILY DOSE
     Route: 048
     Dates: start: 20111019, end: 20111024
  58. PARACETAMOL [Concomitant]
     Dosage: 4 UNKNOWN, DAILY DOSE
     Route: 048
     Dates: start: 20120214, end: 20120217
  59. L-THYROXIN [Concomitant]
     Indication: HYPOTHYROIDISM
     Dosage: 50 MG MILLIGRAM(S), DAILY DOSE
     Route: 048
     Dates: start: 20111019, end: 20111019
  60. L-THYROXIN [Concomitant]
     Dosage: 25 MG MILLIGRAM(S), DAILY DOSE
     Route: 048
     Dates: start: 20111020
  61. PANTOZOL [Concomitant]
     Indication: GASTROOESOPHAGEAL REFLUX DISEASE
     Dosage: 80 MG MILLIGRAM(S), DAILY DOSE
     Route: 048
     Dates: start: 20111018, end: 20111024
  62. PANTOZOL [Concomitant]
     Indication: PROPHYLAXIS AGAINST GASTROINTESTINAL ULCER
  63. BELOC ZOK [Concomitant]
     Indication: HYPERTENSION
     Dosage: 12.25 MG MILLIGRAM(S), DAILY DOSE
     Route: 048
     Dates: end: 20111024
  64. ASS [Concomitant]
     Indication: ARTERIOSCLEROSIS
     Dosage: 100 MG MILLIGRAM(S), DAILY DOSE
     Route: 048
     Dates: start: 20100223, end: 20111123
  65. ASS [Concomitant]
     Dosage: 100 MG MILLIGRAM(S), DAILY DOSE
     Route: 048
     Dates: start: 20111129, end: 201201
  66. ASS [Concomitant]
     Dosage: 100 MG MILLIGRAM(S), DAILY DOSE
     Route: 048
     Dates: start: 20120207
  67. FRAGMIN P [Concomitant]
     Indication: THROMBOSIS PROPHYLAXIS
     Dosage: 5000 IU, DAILY DOSE
     Route: 058
     Dates: start: 20111017, end: 20111106
  68. FRAGMIN P [Concomitant]
     Dosage: 1 DF DOSAGE FORM, DAILY DOSE
     Route: 058
     Dates: start: 20120117, end: 20120123
  69. FRAGMIN P [Concomitant]
     Dosage: 1 DF DOSAGE FORM, DAILY DOSE
     Route: 058
     Dates: start: 20120208, end: 20120221
  70. DULCOLAX [Concomitant]
     Indication: CONSTIPATION
     Dosage: 1 DF DOSAGE FORM, UNK
     Route: 048
     Dates: start: 20111019, end: 20111022
  71. MOVICOL [Concomitant]
     Indication: CONSTIPATION
     Dosage: 1 DF DOSAGE FORM, DAILY DOSE
     Route: 048
     Dates: start: 20111019, end: 20111020
  72. MOVICOL [Concomitant]
     Dosage: 3 DF DOSAGE FORM, DAILY DOSE
     Route: 048
     Dates: start: 20111021, end: 20111022
  73. MOVICOL [Concomitant]
     Dosage: 1 DF DOSAGE FORM, DAILY DOSE
     Route: 048
     Dates: start: 20120117, end: 20120123
  74. NOVALGIN [Concomitant]
     Indication: TUMOUR PAIN
     Dosage: 30 GTT DROP(S), DAILY DOSE
     Route: 048
     Dates: start: 20111017, end: 20111017
  75. NOVALGIN [Concomitant]
     Dosage: 30 MG MILLIGRAM(S), DAILY DOSE
     Route: 048
     Dates: start: 20111020, end: 20111020
  76. NOVALGIN [Concomitant]
     Dosage: 1000 MG MILLIGRAM(S), DAILY DOSE
     Route: 042
     Dates: start: 20111028, end: 20111028
  77. NOVALGIN [Concomitant]
     Dosage: 80 GTT DROP(S), DAILY DOSE
     Route: 048
     Dates: start: 20120206, end: 20120206
  78. NOVALGIN [Concomitant]
     Dosage: 160 GTT DROP(S), DAILY DOSE
     Route: 048
     Dates: start: 20120207, end: 20120210
  79. NOVALGIN [Concomitant]
     Dosage: 40 GTT DROP(S), DAILY DOSE
     Route: 048
     Dates: start: 20120211, end: 20120211
  80. DIPIDOLOR [Concomitant]
     Indication: TUMOUR PAIN
     Dosage: 0.5 DF DOSAGE FORM, DAILY DOSE
     Route: 065
     Dates: start: 20111021, end: 20111022
  81. DIPIDOLOR [Concomitant]
     Dosage: 1 DF DOSAGE FORM, DAILY DOSE
     Route: 048
     Dates: start: 20111029, end: 20111029
  82. SEVREDOL [Concomitant]
     Indication: TUMOUR PAIN
     Dosage: 10 MG MILLIGRAM(S), DAILY DOSE
     Route: 048
     Dates: start: 20111019, end: 20111019
  83. SEVREDOL [Concomitant]
     Dosage: 20 MG MILLIGRAM(S), DAILY DOSE
     Route: 048
     Dates: start: 20111020, end: 20111020
  84. SEVREDOL [Concomitant]
     Dosage: 10 MG MILLIGRAM(S), DAILY DOSE
     Route: 048
     Dates: start: 20111021, end: 20111022
  85. SEVREDOL [Concomitant]
     Dosage: 30 MG MILLIGRAM(S), DAILY DOSE
     Route: 048
     Dates: start: 20111023, end: 20111023
  86. SEVREDOL [Concomitant]
     Dosage: 10 MG MILLIGRAM(S), DAILY DOSE
     Route: 048
     Dates: start: 20111102, end: 20111102
  87. SEVREDOL [Concomitant]
     Dosage: `10 MG MILLIGRAM(S), DAILY DOSE
     Route: 048
     Dates: start: 20111103, end: 20111103
  88. SIMVASTATIN [Concomitant]
     Indication: ARTERIOSCLEROSIS
     Dosage: 20 MG MILLIGRAM(S), DAILY DOSE
     Route: 048
     Dates: start: 20100223, end: 20111017
  89. PANTOZOL [Concomitant]
     Indication: PROPHYLAXIS AGAINST GASTROINTESTINAL ULCER
     Dosage: 20 MG MILLIGRAM(S), DAILY DOSE
     Route: 048
     Dates: start: 20100223, end: 20111017
  90. THYRONAJOD [Concomitant]
     Indication: HYPOTHYROIDISM
     Dosage: 25 MCG, DAILY DOSE
     Route: 048
     Dates: start: 20100223, end: 20111017
  91. SALINE [Concomitant]
     Dosage: 154 MMOL MILLIMOLE(S), UNKNOWN
     Route: 065
     Dates: start: 20111017, end: 20111017
  92. SALINE [Concomitant]
     Dosage: 231 MMOL MILLIMOLE(S), DAILY DOSE
     Route: 065
     Dates: start: 20111027, end: 20111027
  93. SALINE [Concomitant]
     Dosage: 385 MMOL MILLIMOLE(S), DAILY DOSE
     Route: 065
     Dates: start: 20111028, end: 20111029
  94. SALINE [Concomitant]
     Dosage: 231 MMOL MILLIMOLE(S), DAILY DOSE
     Route: 065
     Dates: start: 20111030, end: 20111030
  95. SALINE [Concomitant]
     Dosage: 154 MMOL MILLIMOLE(S), DAILY DOSE
     Route: 065
     Dates: start: 20120117, end: 20120119
  96. SALINE [Concomitant]
     Dosage: 308 MMOL MILLIMOLE(S), DAILY DOSE
     Route: 065
     Dates: start: 20120122, end: 20120122
  97. SALINE [Concomitant]
     Dosage: 154 MMOL MILLIMOLE(S), DAILY DOSE
     Route: 065
     Dates: start: 20120122, end: 20120122
  98. TAVOR [Concomitant]
     Indication: TUMOUR PAIN
     Dosage: 0.5 MG MILLIGRAM(S), DAILY DOSE
     Route: 060
     Dates: start: 20111029, end: 20111029
  99. TAVOR [Concomitant]
     Dosage: 0.5 MG MILLIGRAM(S), DAILY DOSE
     Route: 060
     Dates: start: 20111102, end: 20111102
  100. TAVOR [Concomitant]
     Dosage: 1 MG MILLIGRAM(S), DAILY DOSE
     Route: 048
     Dates: start: 20120206, end: 20120209
  101. TAVOR [Concomitant]
     Dosage: 1.5 MG MILLIGRAM(S), DAILY DOSE
     Route: 048
     Dates: start: 20120210
  102. SAROTEN [Concomitant]
     Indication: TUMOUR PAIN
     Dosage: 25 MG MILLIGRAM(S), DAILY DOSE
     Route: 048
     Dates: start: 20120206, end: 20120217
  103. SAROTEN [Concomitant]
     Dosage: 50 MG MILLIGRAM(S), DAILY DOSE
     Route: 048
     Dates: start: 20120218
  104. CISPLATIN [Concomitant]
     Indication: SMALL CELL LUNG CANCER
     Dosage: 144.8 G GRAM(S), DAILY DOSE
     Route: 042
     Dates: start: 20111028, end: 20111028
  105. CISPLATIN [Concomitant]
     Dosage: UNK
     Dates: start: 201111, end: 201111
  106. CISPLATIN [Concomitant]
     Dosage: UNK
     Dates: start: 201201, end: 201201
  107. ETOPOSIDE [Concomitant]
     Indication: SMALL CELL LUNG CANCER
     Dosage: 181 MG MILLIGRAM(S), DAILY DOSE
     Route: 042
     Dates: start: 20111028, end: 20111030
  108. ETOPOSIDE [Concomitant]
     Dosage: UNK
     Dates: start: 201111, end: 201111
  109. ETOPOSIDE [Concomitant]
     Dosage: UNK
     Dates: start: 201201, end: 201201
  110. FORTECORTIN [Concomitant]
     Indication: SMALL CELL LUNG CANCER
     Dosage: 12 MG MILLIGRAM(S), DAILY DOSE
     Route: 042
     Dates: start: 20111028, end: 20111028
  111. FORTECORTIN [Concomitant]
     Dosage: 8 MG MILLIGRAM(S), DAILY DOSE
     Route: 042
     Dates: start: 20111029, end: 20111030

REACTIONS (17)
  - Oesophagitis [Recovered/Resolved]
  - Tumour pain [Recovered/Resolved]
  - Fear [Recovered/Resolved]
  - Neutropenic infection [Recovered/Resolved]
  - Neutropenia [Recovered/Resolved]
  - Vomiting [Recovered/Resolved]
  - Oropharyngeal pain [Recovered/Resolved]
  - Hypertension [Recovered/Resolved]
  - Tachycardia [Recovered/Resolved]
  - Hypokalaemia [Recovered/Resolved]
  - Hypokalaemia [Recovered/Resolved]
  - Nausea [Recovered/Resolved]
  - Diarrhoea [Recovered/Resolved]
  - Nausea [Recovered/Resolved]
  - Wrong technique in drug usage process [Unknown]
  - Incorrect drug administration rate [Unknown]
  - Confusional state [Recovered/Resolved]
